FAERS Safety Report 9961177 (Version 1)
Quarter: 2014Q1

REPORT INFORMATION
  Report Type: Spontaneous
  Country: DE (occurrence: DE)
  Receive Date: 20140305
  Receipt Date: 20140305
  Transmission Date: 20141002
  Serious: Yes (Hospitalization)
  Sender: FDA-Public Use
  Company Number: DE-SA-2014SA023825

PATIENT
  Age: 77 Year
  Sex: Female
  Weight: 64 kg

DRUGS (10)
  1. LANTUS [Suspect]
     Indication: DIABETES MELLITUS
     Route: 058
     Dates: start: 20130821, end: 20131208
  2. ANTINEOPLASTIC AGENTS [Suspect]
     Indication: RENAL CELL CARCINOMA
     Route: 065
     Dates: start: 20130923, end: 20131208
  3. ALLOPURINOL [Concomitant]
     Indication: HYPERURICAEMIA
     Route: 048
     Dates: start: 20090723
  4. NOVALGIN [Concomitant]
     Indication: PAIN
     Route: 048
     Dates: start: 20090723
  5. PANTOZOL [Concomitant]
     Indication: GASTROOESOPHAGEAL REFLUX DISEASE
     Dates: start: 20090723
  6. ACC [Concomitant]
     Indication: BRONCHITIS CHRONIC
     Route: 048
     Dates: start: 20090219
  7. OBSIDAN [Concomitant]
     Indication: HYPERTENSION
     Route: 048
     Dates: start: 19970101
  8. VALSARTAN [Concomitant]
     Indication: HYPERTENSION
     Route: 048
     Dates: start: 19970101
  9. AMLODIPINE [Concomitant]
     Indication: HYPERTENSION
     Route: 048
     Dates: start: 19970101
  10. AMARYL [Concomitant]
     Indication: DIABETES MELLITUS
     Route: 048
     Dates: start: 20081118

REACTIONS (2)
  - Hyponatraemia [Recovered/Resolved]
  - Blood glucose abnormal [Recovered/Resolved]
